FAERS Safety Report 9785156 (Version 1)
Quarter: 2013Q4

REPORT INFORMATION
  Report Type: Spontaneous
  Country: GB (occurrence: GB)
  Receive Date: 20131227
  Receipt Date: 20131227
  Transmission Date: 20140711
  Serious: Yes (Other)
  Sender: FDA-Public Use
  Company Number: GB-DRREDDYS-GER/UKI/13/0036640

PATIENT
  Age: 16 Year
  Sex: Female
  Weight: 60 kg

DRUGS (2)
  1. LAMOTRIGINE [Suspect]
     Indication: EPILEPSY
     Route: 048
     Dates: start: 20121125
  2. LAMOTRIGINE [Suspect]
     Route: 048
     Dates: end: 20131217

REACTIONS (6)
  - Rash generalised [Unknown]
  - Malaise [Unknown]
  - Pancytopenia [Not Recovered/Not Resolved]
  - Pyrexia [Unknown]
  - Urinary tract infection [Unknown]
  - Urosepsis [Unknown]
